FAERS Safety Report 4372049-9 (Version None)
Quarter: 2004Q2

REPORT INFORMATION
  Report Type: 
  Country: None (occurrence: None)
  Receive Date: 20040602
  Receipt Date: 20040518
  Transmission Date: 20050107
  Serious: Yes (Hospitalization)
  Sender: FDA-Public Use
  Company Number: 2004-DE-02330DE

PATIENT
  Age: 52 Year
  Sex: Male

DRUGS (1)
  1. CLONIDINE [Suspect]
     Dosage: 6000 MCG (150 MCG, 40 IN 1 D) PO
     Route: 048
     Dates: start: 20031117

REACTIONS (3)
  - ELECTROCARDIOGRAM QT PROLONGED [None]
  - INTENTIONAL OVERDOSE [None]
  - SUICIDE ATTEMPT [None]
